FAERS Safety Report 5407511-0 (Version None)
Quarter: 2007Q3

REPORT INFORMATION
  Report Type: 
  Country: None (occurrence: None)
  Receive Date: 20070807
  Receipt Date: 20070726
  Transmission Date: 20080115
  Serious: Yes (Other)
  Sender: FDA-Public Use
  Company Number: US-PFIZER INC-2007062601

PATIENT

DRUGS (3)
  1. LYRICA [Suspect]
  2. ULTRAM [Interacting]
  3. OXYCONTIN [Interacting]

REACTIONS (6)
  - APNOEA [None]
  - DRUG INTERACTION [None]
  - MYDRIASIS [None]
  - OVERDOSE [None]
  - TACHYCARDIA [None]
  - UNRESPONSIVE TO STIMULI [None]
